FAERS Safety Report 21073074 (Version 1)
Quarter: 2022Q3

REPORT INFORMATION
  Report Type: Spontaneous
  Country: US (occurrence: US)
  Receive Date: 20220712
  Receipt Date: 20220712
  Transmission Date: 20221026
  Serious: No
  Sender: FDA-Public Use
  Company Number: US-SA-SAC20220707000913

PATIENT
  Sex: Female

DRUGS (10)
  1. DUPIXENT [Suspect]
     Active Substance: DUPILUMAB
     Indication: Asthma
     Dosage: 300 MG, QOW
     Route: 058
  2. DICLOFENAC SODIUM [Concomitant]
     Active Substance: DICLOFENAC SODIUM
  3. ASPIRIN [Concomitant]
     Active Substance: ASPIRIN
  4. GABAPENTIN [Concomitant]
     Active Substance: GABAPENTIN
  5. IBUPROFEN [Concomitant]
     Active Substance: IBUPROFEN
  6. ALBUTEROL SULFATE [Concomitant]
     Active Substance: ALBUTEROL SULFATE
  7. ATORVASTATIN [Concomitant]
     Active Substance: ATORVASTATIN
  8. CLOTRIMAZOLE [Concomitant]
     Active Substance: CLOTRIMAZOLE
  9. EPIPEN [Concomitant]
     Active Substance: EPINEPHRINE
  10. MONTELUKAST [Concomitant]
     Active Substance: MONTELUKAST SODIUM

REACTIONS (1)
  - Injection site erythema [Not Recovered/Not Resolved]
